FAERS Safety Report 6080974-6 (Version None)
Quarter: 2009Q1

REPORT INFORMATION
  Report Type: 
  Country: None (occurrence: None)
  Receive Date: 20090217
  Receipt Date: 20090128
  Transmission Date: 20090719
  Serious: No
  Sender: FDA-Public Use
  Company Number: US-B.I. PHARMACEUTICALS,INC./RIDGEFIELD-2009-BP-01095BP

PATIENT
  Sex: Female

DRUGS (3)
  1. SPIRIVA [Suspect]
     Indication: CHRONIC OBSTRUCTIVE PULMONARY DISEASE
     Dosage: 18MCG
     Route: 055
     Dates: start: 20080101
  2. METFORMIN HCL [Concomitant]
     Indication: DIABETES MELLITUS
     Route: 048
  3. BP MED [Concomitant]
     Indication: HYPERTENSION

REACTIONS (5)
  - ALOPECIA [None]
  - ATRIAL FIBRILLATION [None]
  - DYSPNOEA [None]
  - MACULAR DEGENERATION [None]
  - URINARY TRACT INFECTION [None]
